FAERS Safety Report 22247828 (Version 1)
Quarter: 2023Q2

REPORT INFORMATION
  Report Type: Report from Study
  Country: US (occurrence: US)
  Receive Date: 20230425
  Receipt Date: 20230425
  Transmission Date: 20230721
  Serious: Yes (Other)
  Sender: FDA-Public Use
  Company Number: US-ABBVIE-4739687

PATIENT
  Age: 69 Year
  Sex: Female

DRUGS (3)
  1. RINVOQ [Suspect]
     Active Substance: UPADACITINIB
     Indication: Pruritus
     Dosage: FORM STRENGTH: 15 MG
     Route: 048
     Dates: end: 20230417
  2. SIMVASTATIN [Concomitant]
     Active Substance: SIMVASTATIN
     Indication: Product used for unknown indication
     Dosage: 80 MG
  3. EFFEXOR [Concomitant]
     Active Substance: VENLAFAXINE HYDROCHLORIDE
     Indication: Product used for unknown indication
     Dosage: XR CP2 150MG

REACTIONS (5)
  - Tooth fracture [Unknown]
  - Weight increased [Unknown]
  - Unevaluable event [Recovered/Resolved]
  - Product dispensing error [Unknown]
  - Lethargy [Unknown]

NARRATIVE: CASE EVENT DATE: 20230401
